FAERS Safety Report 4810132-1 (Version None)
Quarter: 2005Q4

REPORT INFORMATION
  Report Type: 
  Country: None (occurrence: None)
  Receive Date: 20051024
  Receipt Date: 20051024
  Transmission Date: 20060501
  Serious: Yes (Hospitalization)
  Sender: FDA-Public Use
  Company Number: None

PATIENT
  Sex: Male
  Weight: 107 kg

DRUGS (15)
  1. CYCLOPHOSPHAMIDE [Suspect]
     Indication: ACUTE LYMPHOCYTIC LEUKAEMIA
     Dosage: SEE IMAGE
     Route: 042
     Dates: start: 20050909, end: 20050909
  2. ALLOPURINOL [Suspect]
     Dosage: SEE IMAGE
     Route: 048
  3. DAUNORUBICIN [Suspect]
     Dosage: SEE IMAGE
     Route: 042
     Dates: end: 20050911
  4. VINCRISTINE [Suspect]
     Dosage: SEE IMAGE
     Route: 042
     Dates: end: 20050923
  5. DEXAMETHASONE [Suspect]
     Dosage: SEE IMAGE
     Route: 048
  6. L-ASPARAGINASE [Suspect]
     Dosage: SEE IMAGE
     Route: 058
     Dates: end: 20050926
  7. G-CSF [Suspect]
     Dosage: SEE IMAGE
     Route: 058
  8. METHOTREXATE [Suspect]
     Dosage: SEE IMAGE
     Route: 037
  9. CYCLOPHOSPHAMIDE [Suspect]
     Dosage: SEE IMAGE
     Route: 042
     Dates: start: 20050909, end: 20050909
  10. CYTARABINE [Suspect]
     Dosage: SEE IMAGE
     Route: 042
  11. L-ASPARAGINASE [Suspect]
     Dosage: SEE IMAGE
     Route: 058
     Dates: end: 20050926
  12. DEXAMETHASONE [Suspect]
     Dosage: SEE IMAGE
  13. G-CSF [Suspect]
     Dosage: SEE IMAGE
     Route: 058
  14. COTRIMAZOLE DS [Suspect]
     Dosage: SEE IMAGE
     Route: 048
  15. HYDROCORTISONE [Suspect]
     Dosage: SEE IMAGE
     Route: 037

REACTIONS (10)
  - COMPUTERISED TOMOGRAM ABNORMAL [None]
  - ELECTROENCEPHALOGRAM ABNORMAL [None]
  - ENCEPHALOPATHY [None]
  - FATIGUE [None]
  - HEART RATE INCREASED [None]
  - HEPATIC STEATOSIS [None]
  - HEPATITIS [None]
  - HERPES SIMPLEX [None]
  - HYPOXIA [None]
  - LOSS OF CONSCIOUSNESS [None]
